FAERS Safety Report 10016848 (Version 1)
Quarter: 2014Q1

REPORT INFORMATION
  Report Type: Spontaneous
  Country: US (occurrence: US)
  Receive Date: 20140318
  Receipt Date: 20140318
  Transmission Date: 20141002
  Serious: Yes (Hospitalization)
  Sender: FDA-Public Use
  Company Number: US-ROCHE-1360323

PATIENT
  Age: 25 Year
  Sex: Female

DRUGS (16)
  1. PULMOZYME [Suspect]
     Indication: PRODUCT USED FOR UNKNOWN INDICATION
     Route: 065
  2. CAYSTON [Suspect]
     Indication: PRODUCT USED FOR UNKNOWN INDICATION
     Route: 065
  3. TAMIFLU [Concomitant]
     Route: 065
  4. CHOLECALCIFEROL [Concomitant]
  5. SYMBICORT [Concomitant]
  6. MARINOL (UNITED STATES) [Concomitant]
  7. MEPHYTON [Concomitant]
  8. HYPERTONIC SALINE [Concomitant]
  9. CALCIUM CARBONATE [Concomitant]
  10. SELENIUM [Concomitant]
  11. CREON 24 [Concomitant]
  12. AQUADEKS [Concomitant]
  13. ALBUTEROL [Concomitant]
  14. ACETAMINOPHEN [Concomitant]
  15. LEVAQUIN [Concomitant]
     Route: 065
     Dates: start: 20140104, end: 20140118
  16. LEVAQUIN [Concomitant]
     Route: 065
     Dates: start: 20140121, end: 20140128

REACTIONS (1)
  - Haemoptysis [Not Recovered/Not Resolved]
